FAERS Safety Report 6008511-2 (Version None)
Quarter: 2008Q4

REPORT INFORMATION
  Report Type: 
  Country: None (occurrence: None)
  Receive Date: 20081217
  Receipt Date: 20081211
  Transmission Date: 20090506
  Serious: Yes (Other)
  Sender: FDA-Public Use
  Company Number: FR-ELI_LILLY_AND_COMPANY-FR200811005280

PATIENT
  Age: 42 Year
  Sex: Female

DRUGS (1)
  1. CYMBALTA [Suspect]
     Dosage: 60 MG, DAILY (1/D)
     Route: 048

REACTIONS (7)
  - FACIAL BONES FRACTURE [None]
  - FALL [None]
  - JAW FRACTURE [None]
  - LOSS OF CONSCIOUSNESS [None]
  - PAIN [None]
  - TRIGEMINAL NERVE DISORDER [None]
  - VERTIGO [None]
